FAERS Safety Report 15124621 (Version 1)
Quarter: 2018Q3

REPORT INFORMATION
  Report Type: Spontaneous
  Country: US (occurrence: US)
  Receive Date: 20180710
  Receipt Date: 20180710
  Transmission Date: 20181010
  Serious: No
  Sender: FDA-Public Use
  Company Number: US-PFIZER INC-2018275926

PATIENT
  Age: 37 Year
  Sex: Female
  Weight: 95.25 kg

DRUGS (4)
  1. LYRICA [Suspect]
     Active Substance: PREGABALIN
     Indication: FIBROMYALGIA
     Dosage: 150 MG, 2X/DAY
     Route: 048
     Dates: start: 201801
  2. WELLBUTRIN [Concomitant]
     Active Substance: BUPROPION HYDROCHLORIDE
     Indication: DEPRESSION
     Dosage: 150 MG, 1X/DAY(150MG XR ONCE A DAY)
     Dates: start: 2017
  3. GEODON [Concomitant]
     Active Substance: ZIPRASIDONE HYDROCHLORIDE\ZIPRASIDONE MESYLATE
     Indication: SCHIZOPHRENIA
     Dosage: 60 OR 80 MG TABLET ONCE A DAY
     Route: 048
     Dates: start: 2017, end: 201806
  4. EFFEXOR [Concomitant]
     Active Substance: VENLAFAXINE HYDROCHLORIDE
     Indication: BIPOLAR DISORDER
     Dosage: 300 MG, 1X/DAY(75MG 4 CAPSULES ONCE A DAY)
     Dates: start: 1995

REACTIONS (3)
  - Pain in extremity [Unknown]
  - Drug dose omission [Not Recovered/Not Resolved]
  - Laceration [Unknown]

NARRATIVE: CASE EVENT DATE: 201806
